FAERS Safety Report 6743260-4 (Version None)
Quarter: 2010Q2

REPORT INFORMATION
  Report Type: 
  Country: None (occurrence: None)
  Receive Date: 20100527
  Receipt Date: 20100519
  Transmission Date: 20101027
  Serious: Yes (Other)
  Sender: FDA-Public Use
  Company Number: PHHY2009DE34719

PATIENT
  Sex: Female

DRUGS (1)
  1. ESTRAGEST TTS [Suspect]
     Indication: HORMONE REPLACEMENT THERAPY
     Dosage: 25/125 MCG
     Route: 062
     Dates: start: 20090601, end: 20090801

REACTIONS (2)
  - PALPITATIONS [None]
  - TACHYCARDIA PAROXYSMAL [None]
